FAERS Safety Report 5028852-5 (Version None)
Quarter: 2006Q2

REPORT INFORMATION
  Report Type: 
  Country: None (occurrence: None)
  Receive Date: 20060501
  Receipt Date: 20060308
  Transmission Date: 20061013
  Serious: No
  Sender: FDA-Public Use
  Company Number: 200612339US

PATIENT
  Age: 33 Year
  Sex: Female
  Weight: 54.54 kg

DRUGS (3)
  1. KETEK [Suspect]
     Indication: UPPER RESPIRATORY TRACT INFECTION
     Dosage: 400 MG BID PO
     Route: 048
     Dates: start: 20060307
  2. DESLORATADINE [Concomitant]
  3. ALBUTEROL SPIROS [Concomitant]

REACTIONS (4)
  - DIARRHOEA [None]
  - DIPLOPIA [None]
  - DIZZINESS [None]
  - VISION BLURRED [None]
